FAERS Safety Report 7601768-3 (Version None)
Quarter: 2011Q3

REPORT INFORMATION
  Report Type: 
  Country: None (occurrence: None)
  Receive Date: 20110711
  Receipt Date: 20110706
  Transmission Date: 20111222
  Serious: Yes (Hospitalization)
  Sender: FDA-Public Use
  Company Number: CH-US-EMD SERONO, INC.-7019183

PATIENT
  Sex: Female
  Weight: 49 kg

DRUGS (4)
  1. PROGESTERONE [Concomitant]
     Route: 067
     Dates: start: 20030101, end: 20050101
  2. GONAL-F [Suspect]
     Dates: start: 20050101, end: 20060101
  3. PREGNYL [Suspect]
     Indication: PRODUCT USED FOR UNKNOWN INDICATION
     Route: 058
  4. GONAL-F [Suspect]
     Indication: PRODUCT USED FOR UNKNOWN INDICATION
     Route: 058
     Dates: start: 20030101, end: 20040101

REACTIONS (5)
  - EPILEPSY [None]
  - METASTASES TO LUNG [None]
  - MELANOMA RECURRENT [None]
  - METASTASES TO CENTRAL NERVOUS SYSTEM [None]
  - METASTASES TO LIVER [None]
